FAERS Safety Report 4691840-2 (Version None)
Quarter: 2005Q2

REPORT INFORMATION
  Report Type: 
  Country: None (occurrence: None)
  Receive Date: 20050608
  Receipt Date: 20040909
  Transmission Date: 20051028
  Serious: Yes (Other)
  Sender: FDA-Public Use
  Company Number: 360948

PATIENT

DRUGS (2)
  1. ACCUTANE [Suspect]
     Dates: start: 20040222, end: 20040301
  2. ORTHO TRI-CYCLEN [Concomitant]

REACTIONS (2)
  - ABORTION INDUCED [None]
  - DRUG EXPOSURE DURING PREGNANCY [None]
